FAERS Safety Report 7528979-X (Version None)
Quarter: 2011Q2

REPORT INFORMATION
  Report Type: 
  Country: None (occurrence: None)
  Receive Date: 20110607
  Receipt Date: 20110526
  Transmission Date: 20111010
  Serious: Yes (Hospitalization)
  Sender: FDA-Public Use
  Company Number: PHHO2010US04591

PATIENT
  Sex: Female
  Weight: 52 kg

DRUGS (3)
  1. ZORTRESS [Suspect]
     Dosage: UNK
     Route: 048
     Dates: start: 20100218
  2. ZORTRESS [Suspect]
     Indication: RENAL TRANSPLANT
     Dosage: 2 MG, BID
     Route: 048
     Dates: start: 20041217, end: 20100215
  3. MYFORTIC [Suspect]
     Indication: RENAL TRANSPLANT
     Route: 048

REACTIONS (8)
  - DYSPNOEA [None]
  - RENAL FAILURE [None]
  - CONCOMITANT DISEASE PROGRESSION [None]
  - PNEUMONIA [None]
  - PYREXIA [None]
  - MALAISE [None]
  - ANAEMIA [None]
  - COUGH [None]
